FAERS Safety Report 5670435-8 (Version None)
Quarter: 2008Q1

REPORT INFORMATION
  Report Type: 
  Country: None (occurrence: None)
  Receive Date: 20080318
  Receipt Date: 20080304
  Transmission Date: 20080703
  Serious: Yes (Other)
  Sender: FDA-Public Use
  Company Number: GR-ELI_LILLY_AND_COMPANY-GR200803000835

PATIENT
  Age: 29 Year
  Sex: Male

DRUGS (2)
  1. LADOSE [Suspect]
     Indication: PREMATURE EJACULATION
     Dosage: 20 MG, DAILY (1/D)
     Route: 048
     Dates: start: 20080122, end: 20080201
  2. CIALIS [Suspect]
     Indication: ERECTILE DYSFUNCTION
     Dosage: 20 MG, 2/W
     Route: 048
     Dates: start: 20080122

REACTIONS (4)
  - BACK PAIN [None]
  - BONE PAIN [None]
  - PRURITUS [None]
  - RASH MACULAR [None]
